FAERS Safety Report 25973747 (Version 1)
Quarter: 2025Q4

REPORT INFORMATION
  Report Type: Spontaneous
  Country: US (occurrence: US)
  Receive Date: 20251029
  Receipt Date: 20251029
  Transmission Date: 20260118
  Serious: No
  Sender: AMNEAL
  Company Number: US-AMNEAL PHARMACEUTICALS-2025-AMRX-02238

PATIENT
  Age: 59 Year
  Sex: Female

DRUGS (3)
  1. PROGESTERONE [Suspect]
     Active Substance: PROGESTERONE
     Indication: Hormone replacement therapy
     Dosage: UNK
     Route: 048
  2. ESTROGENS [Suspect]
     Active Substance: ESTROGENS
     Indication: Hormone replacement therapy
     Dosage: UNK
     Route: 065
  3. CLIMARA [Concomitant]
     Active Substance: ESTRADIOL
     Indication: Hormone replacement therapy
     Dosage: UNK
     Route: 065

REACTIONS (1)
  - Rash [Unknown]
